FAERS Safety Report 19446762 (Version 1)
Quarter: 2021Q2

REPORT INFORMATION
  Report Type: Spontaneous
  Country: US (occurrence: US)
  Receive Date: 20210620
  Receipt Date: 20210620
  Transmission Date: 20210717
  Serious: Yes (Hospitalization)
  Sender: FDA-Public Use
  Company Number: None

PATIENT
  Age: 16 Year
  Sex: Male

DRUGS (3)
  1. NORDITROPIN [Suspect]
     Active Substance: SOMATROPIN
     Indication: HYPOPITUITARISM
     Dosage: OTHER FREQUENCY:6 DAYS WK, MON?SAT;?
     Route: 048
  2. RAPAMUNE [Concomitant]
     Active Substance: SIROLIMUS
  3. VITAMIN B [Concomitant]
     Active Substance: VITAMIN B

REACTIONS (2)
  - Product dose omission issue [None]
  - Vaccination complication [None]

NARRATIVE: CASE EVENT DATE: 20210614
